FAERS Safety Report 23838816 (Version 2)
Quarter: 2024Q2

REPORT INFORMATION
  Report Type: Spontaneous
  Country: US (occurrence: US)
  Receive Date: 20240509
  Receipt Date: 20240517
  Transmission Date: 20240716
  Serious: Yes (Hospitalization, Other)
  Sender: FDA-Public Use
  Company Number: US-ARGENX-2024-ARGX-US002817

PATIENT

DRUGS (1)
  1. VYVGART [Suspect]
     Active Substance: EFGARTIGIMOD ALFA-FCAB
     Indication: Myasthenia gravis
     Dosage: UNK, 1/WEEK FOR 4 WEEKS
     Route: 042
     Dates: start: 2023, end: 202311

REACTIONS (14)
  - Pneumonia [Recovered/Resolved]
  - Hospitalisation [Unknown]
  - Diabetes mellitus [Unknown]
  - Hip surgery [Unknown]
  - Infection [Recovered/Resolved]
  - Arthralgia [Unknown]
  - Headache [Unknown]
  - Arthritis [Unknown]
  - Musculoskeletal stiffness [Unknown]
  - Pain in extremity [Unknown]
  - Ageusia [Unknown]
  - Chills [Unknown]
  - Therapeutic response shortened [Unknown]
  - Therapeutic product effect decreased [Unknown]

NARRATIVE: CASE EVENT DATE: 20231101
